FAERS Safety Report 6898857-8 (Version None)
Quarter: 2010Q3

REPORT INFORMATION
  Report Type: 
  Country: None (occurrence: None)
  Receive Date: 20100802
  Receipt Date: 20071211
  Transmission Date: 20110219
  Serious: No
  Sender: FDA-Public Use
  Company Number: US-PFIZER INC-2007086014

PATIENT
  Sex: Female

DRUGS (2)
  1. LYRICA [Suspect]
     Indication: FIBROMYALGIA
  2. LYRICA [Suspect]
     Indication: NEURALGIA

REACTIONS (4)
  - DRUG INEFFECTIVE [None]
  - INCREASED APPETITE [None]
  - JOINT SWELLING [None]
  - WEIGHT INCREASED [None]
